FAERS Safety Report 20314935 (Version 1)
Quarter: 2022Q1

REPORT INFORMATION
  Report Type: Spontaneous
  Country: US (occurrence: None)
  Receive Date: 20220110
  Receipt Date: 20220110
  Transmission Date: 20220423
  Serious: No
  Sender: FDA-Public Use
  Company Number: US-ROCHE-2948491

PATIENT
  Sex: Male
  Weight: 82.628 kg

DRUGS (4)
  1. RITUXAN [Suspect]
     Active Substance: RITUXIMAB
     Indication: Rheumatoid arthritis
     Dosage: YES
     Route: 042
     Dates: start: 2021
  2. OCREVUS [Suspect]
     Active Substance: OCRELIZUMAB
     Indication: Product used for unknown indication
     Route: 065
  3. OLUMIANT [Suspect]
     Active Substance: BARICITINIB
     Indication: Product used for unknown indication
     Route: 065
  4. OMEPRAZOLE [Concomitant]
     Active Substance: OMEPRAZOLE
     Indication: Dyspepsia
     Dosage: YES
     Route: 048
     Dates: start: 2021

REACTIONS (6)
  - Pulmonary mass [Unknown]
  - Skin ulcer [Recovered/Resolved]
  - Painful respiration [Recovered/Resolved]
  - Condition aggravated [Recovered/Resolved]
  - Therapy partial responder [Recovered/Resolved]
  - Pain [Recovering/Resolving]

NARRATIVE: CASE EVENT DATE: 20210101
